FAERS Safety Report 6744999-7 (Version None)
Quarter: 2010Q2

REPORT INFORMATION
  Report Type: 
  Country: None (occurrence: None)
  Receive Date: 20100527
  Receipt Date: 20100519
  Transmission Date: 20101027
  Serious: Yes (Other)
  Sender: FDA-Public Use
  Company Number: FR-AMGEN-US407330

PATIENT
  Sex: Female

DRUGS (3)
  1. ENBREL [Suspect]
     Indication: SPONDYLITIS
     Dosage: UNKNOWN
     Route: 058
     Dates: end: 20080830
  2. METHOTREXATE [Suspect]
     Dosage: UNKNOWN
  3. HUMIRA [Suspect]
     Route: 058
     Dates: start: 20080901, end: 20100101

REACTIONS (1)
  - CERVICAL DYSPLASIA [None]
